FAERS Safety Report 20876522 (Version 1)
Quarter: 2022Q2

REPORT INFORMATION
  Report Type: Report from Study
  Country: ES (occurrence: ES)
  Receive Date: 20220526
  Receipt Date: 20220526
  Transmission Date: 20220721
  Serious: Yes (Hospitalization)
  Sender: FDA-Public Use
  Company Number: ES-ELI_LILLY_AND_COMPANY-ES202205005109

PATIENT
  Age: 12 Year
  Sex: Male
  Weight: 48.8 kg

DRUGS (6)
  1. ABEMACICLIB [Suspect]
     Active Substance: ABEMACICLIB
     Indication: Anaplastic astrocytoma
     Dosage: 75 MG, BID
     Route: 048
     Dates: start: 20220419
  2. ABEMACICLIB [Suspect]
     Active Substance: ABEMACICLIB
     Dosage: 75 MG, BID
     Route: 048
  3. TEMOZOLOMIDE [Suspect]
     Active Substance: TEMOZOLOMIDE
     Indication: Anaplastic astrocytoma
     Dosage: 140 MG, CYCLICAL, DAYS 1 TO 5 OF A 21 DAY CYCLE
     Route: 048
     Dates: start: 20220419
  4. IRINOTECAN [Suspect]
     Active Substance: IRINOTECAN
     Indication: Anaplastic astrocytoma
     Dosage: 70 MG, CYCLICAL, DAYS 1 TO 5 OF A 21 DAY CYCLE
     Route: 042
     Dates: start: 20220419, end: 20220423
  5. CEFIXIME [Concomitant]
     Active Substance: CEFIXIME
     Indication: Prophylaxis
     Dosage: UNK
     Dates: start: 20220419
  6. HYDROCORTISONE [Concomitant]
     Active Substance: HYDROCORTISONE
     Indication: Anaplastic astrocytoma
     Dosage: UNK
     Route: 065
     Dates: start: 20220416

REACTIONS (2)
  - Vomiting [Recovered/Resolved]
  - Seizure [Recovering/Resolving]

NARRATIVE: CASE EVENT DATE: 20220511
